FAERS Safety Report 16995616 (Version 6)
Quarter: 2020Q4

REPORT INFORMATION
  Report Type: Spontaneous
  Country: US (occurrence: US)
  Receive Date: 20191105
  Receipt Date: 20201109
  Transmission Date: 20210113
  Serious: Yes (Hospitalization)
  Sender: FDA-Public Use
  Company Number: US-PFIZER INC-2019473745

PATIENT
  Age: 13 Year
  Sex: Male
  Weight: 59 kg

DRUGS (2)
  1. RAPAMUNE [Suspect]
     Active Substance: SIROLIMUS
     Indication: LIMB MALFORMATION
  2. RAPAMUNE [Suspect]
     Active Substance: SIROLIMUS
     Indication: HYPERPLASIA
     Dosage: 1.5 MG, 2X/DAY
     Route: 048
     Dates: start: 20191002, end: 2019

REACTIONS (4)
  - Vomiting [Not Recovered/Not Resolved]
  - Off label use [Unknown]
  - Diarrhoea [Not Recovered/Not Resolved]
  - Nausea [Not Recovered/Not Resolved]

NARRATIVE: CASE EVENT DATE: 20191002
